FAERS Safety Report 7640018 (Version 5)
Quarter: 2012Q4

REPORT INFORMATION
  Report Type: 
  Country: CA (occurrence: CA)
  Receive Date: 20101026
  Receipt Date: 20120917
  Transmission Date: 20130627
  Serious: Yes (Other)
  Sender: FDA-Public Use
  Company Number: PHHY2010CA60379

PATIENT
  Age: 60 None
  Sex: Female

DRUGS (4)
  1. ACLASTA [Suspect]
     Indication: OSTEOPOROSIS
     Dosage: 5 mg, UNK
     Route: 042
     Dates: start: 20081020
  2. ACLASTA [Suspect]
     Dates: start: 20091103
  3. ACLASTA [Suspect]
     Dosage: 5 mg, UNK
     Route: 042
     Dates: start: 20101103
  4. ACLASTA [Suspect]
     Route: 042
     Dates: start: 20111105

REACTIONS (10)
  - Glaucoma [Unknown]
  - Visual acuity reduced [Unknown]
  - Urinary tract infection [Unknown]
  - Oral mucosal blistering [Unknown]
  - Oral pain [Unknown]
  - Pain in jaw [Unknown]
  - Toothache [Unknown]
  - Rash [Unknown]
  - Pyrexia [Unknown]
  - Pain [Unknown]
